FAERS Safety Report 8983104 (Version 1)
Quarter: 2012Q4

REPORT INFORMATION
  Report Type: Report from Study
  Country: JP (occurrence: JP)
  Receive Date: 20121224
  Receipt Date: 20121224
  Transmission Date: 20130627
  Serious: Yes (Death)
  Sender: FDA-Public Use
  Company Number: JP-009507513-2011SP053317

PATIENT
  Age: 51 Year
  Sex: Male
  Weight: 74 kg

DRUGS (10)
  1. TEMOZOLOMIDE [Suspect]
     Indication: ANAPLASTIC ASTROCYTOMA
     Dosage: 75 mg/m2, QD
     Route: 048
     Dates: start: 20061122, end: 20070102
  2. TEMOZOLOMIDE [Suspect]
     Dosage: 150 mg/m2, QD
     Route: 048
     Dates: start: 20070130, end: 20070203
  3. TEMOZOLOMIDE [Suspect]
     Dosage: 200 mg/m2, QD
     Route: 048
     Dates: start: 20070228, end: 20070304
  4. TEMOZOLOMIDE [Suspect]
     Dosage: 200 mg/m2, qd
     Route: 048
     Dates: start: 20070324, end: 20070402
  5. TEMOZOLOMIDE [Suspect]
     Dosage: 200 mg/m2, qd
     Route: 048
     Dates: start: 20070426, end: 20070430
  6. TEMOZOLOMIDE [Suspect]
     Dosage: 200 mg/m2, qd
     Route: 048
     Dates: start: 20070524, end: 20070528
  7. BAKTAR [Concomitant]
     Indication: ANTIFUNGAL PROPHYLAXIS
     Dosage: daily dose unknown
     Route: 048
     Dates: start: 20061122, end: 20070209
  8. BAKTAR [Concomitant]
     Dosage: daily dose unknown
     Route: 048
     Dates: start: 20070210
  9. GASTER [Concomitant]
     Indication: PROPHYLAXIS
     Dosage: daily dose unknown
     Route: 048
     Dates: end: 20070810
  10. LEXIN (CARBAMAZEPINE) [Concomitant]
     Indication: PROPHYLAXIS
     Dosage: daily dose unknown, formulation:por
     Route: 048
     Dates: end: 20070629

REACTIONS (4)
  - Disease progression [Fatal]
  - Lymphocyte count decreased [Not Recovered/Not Resolved]
  - Gamma-glutamyltransferase increased [Not Recovered/Not Resolved]
  - White blood cell count increased [Recovered/Resolved]
